FAERS Safety Report 11128990 (Version 1)
Quarter: 2015Q2

REPORT INFORMATION
  Report Type: Spontaneous
  Country: US (occurrence: US)
  Receive Date: 20150521
  Receipt Date: 20150521
  Transmission Date: 20150821
  Serious: Yes (Hospitalization, Other)
  Sender: FDA-Public Use
  Company Number: US-GLAXOSMITHKLINE-US2015GSK069000

PATIENT
  Age: 57 Year
  Sex: Female

DRUGS (1)
  1. TANZEUM [Suspect]
     Active Substance: ALBIGLUTIDE
     Indication: TYPE 2 DIABETES MELLITUS
     Dosage: 50 MG, WE
     Route: 042
     Dates: start: 201503, end: 20150515

REACTIONS (9)
  - Hyperglycaemia [Unknown]
  - Feeling abnormal [Unknown]
  - Hyperhidrosis [Unknown]
  - Feeling hot [Unknown]
  - Hypoglycaemia [Unknown]
  - Cold sweat [Unknown]
  - Hospitalisation [Recovered/Resolved]
  - Blood glucose fluctuation [Unknown]
  - Feeling cold [Unknown]

NARRATIVE: CASE EVENT DATE: 20150504
